FAERS Safety Report 9236229 (Version 2)
Quarter: 2013Q3

REPORT INFORMATION
  Report Type: Spontaneous
  Country: US (occurrence: US)
  Receive Date: 20130417
  Receipt Date: 20130822
  Transmission Date: 20140515
  Serious: Yes (Hospitalization, Other)
  Sender: FDA-Public Use
  Company Number: US-BAYER-2013-048253

PATIENT
  Age: 28 Year
  Sex: Female
  Weight: 68.03 kg

DRUGS (2)
  1. YAZ [Suspect]
     Indication: CONTRACEPTION
     Dosage: UNK
     Dates: start: 200701, end: 201208
  2. ACETAMINOPHEN [Concomitant]

REACTIONS (10)
  - Pulmonary embolism [None]
  - Deep vein thrombosis [None]
  - Deep vein thrombosis [Recovering/Resolving]
  - Thrombophlebitis superficial [Recovering/Resolving]
  - Pelvic venous thrombosis [Recovering/Resolving]
  - Inferior vena caval occlusion [Recovering/Resolving]
  - Injury [None]
  - Pain [None]
  - Emotional distress [None]
  - Pain [None]
